FAERS Safety Report 7719407-X (Version None)
Quarter: 2011Q3

REPORT INFORMATION
  Report Type: 
  Country: None (occurrence: None)
  Receive Date: 20110830
  Receipt Date: 20110819
  Transmission Date: 20111222
  Serious: Yes (Other)
  Sender: FDA-Public Use
  Company Number: PHHY2011BE75968

PATIENT
  Sex: Male
  Weight: 8 kg

DRUGS (1)
  1. METHERGINE [Suspect]
     Dosage: 2 X HALF A PIPETTE (UNSPECIFIED VOLUME, PRESUMABLY A FEW DROPS)
     Route: 045
     Dates: start: 19910101

REACTIONS (2)
  - WRONG DRUG ADMINISTERED [None]
  - VOMITING [None]
